FAERS Safety Report 21622700 (Version 1)
Quarter: 2022Q4

REPORT INFORMATION
  Report Type: Spontaneous
  Country: US (occurrence: US)
  Receive Date: 20221121
  Receipt Date: 20221121
  Transmission Date: 20230113
  Serious: No
  Sender: FDA-Public Use
  Company Number: US-PFIZER INC-202201313884

PATIENT
  Age: 66 Year
  Sex: Female

DRUGS (1)
  1. METAXALONE [Suspect]
     Active Substance: METAXALONE
     Indication: Fibromyalgia
     Dosage: UNK
     Dates: start: 202211

REACTIONS (2)
  - Dyspepsia [Unknown]
  - Off label use [Unknown]

NARRATIVE: CASE EVENT DATE: 20221101
